FAERS Safety Report 9046258 (Version 3)
Quarter: 2013Q2

REPORT INFORMATION
  Report Type: Spontaneous
  Country: US (occurrence: US)
  Receive Date: 20130201
  Receipt Date: 20130517
  Transmission Date: 20140414
  Serious: Yes (Hospitalization, Other)
  Sender: FDA-Public Use
  Company Number: US-009507513-1301USA014319

PATIENT
  Sex: Male

DRUGS (3)
  1. JANUVIA [Suspect]
     Dosage: 100 MG, QD
     Route: 048
     Dates: start: 201203
  2. METFORMIN [Concomitant]
     Dosage: UNKNOWN
  3. GLYBURIDE [Concomitant]
     Dosage: UNKNOWN

REACTIONS (2)
  - Pancreatic carcinoma [Unknown]
  - Pancreaticoduodenectomy [Unknown]
